FAERS Safety Report 17449309 (Version 1)
Quarter: 2020Q1

REPORT INFORMATION
  Report Type: Spontaneous
  Country: CA (occurrence: CA)
  Receive Date: 20200224
  Receipt Date: 20200224
  Transmission Date: 20200409
  Serious: Yes (Other)
  Sender: FDA-Public Use
  Company Number: CA-PFIZER INC-2020073056

PATIENT
  Sex: Female

DRUGS (4)
  1. PREDNISONE. [Concomitant]
     Active Substance: PREDNISONE
     Dosage: UNK
     Route: 065
  2. SULFASALAZINE. [Suspect]
     Active Substance: SULFASALAZINE
     Dosage: 50 MG, 1X/DAY
  3. HYDROXYCHLOROQUINE SULFATE. [Suspect]
     Active Substance: HYDROXYCHLOROQUINE SULFATE
     Dosage: UNK
  4. METHOTREXATE SODIUM. [Suspect]
     Active Substance: METHOTREXATE SODIUM
     Dosage: UNK

REACTIONS (5)
  - Contraindicated product administered [Unknown]
  - Drug intolerance [Unknown]
  - Gastrointestinal disorder [Unknown]
  - Hepatitis [Unknown]
  - Rash [Unknown]
